FAERS Safety Report 16190306 (Version 4)
Quarter: 2020Q3

REPORT INFORMATION
  Report Type: Spontaneous
  Country: US (occurrence: US)
  Receive Date: 20190412
  Receipt Date: 20200702
  Transmission Date: 20201102
  Serious: No
  Sender: FDA-Public Use
  Company Number: US-PFIZER INC-2019154367

PATIENT
  Age: 53 Year
  Sex: Female

DRUGS (2)
  1. XELJANZ [Suspect]
     Active Substance: TOFACITINIB CITRATE
     Dosage: 5 MG
     Dates: start: 20200310
  2. XELJANZ [Suspect]
     Active Substance: TOFACITINIB CITRATE
     Indication: ALOPECIA
     Dosage: 5 MG, UNK
     Dates: start: 20160402

REACTIONS (6)
  - Product use in unapproved indication [Unknown]
  - Weight increased [Unknown]
  - Product prescribing issue [Unknown]
  - Drug effective for unapproved indication [Unknown]
  - Off label use [Unknown]
  - Night sweats [Unknown]

NARRATIVE: CASE EVENT DATE: 20160402
